FAERS Safety Report 14820770 (Version 6)
Quarter: 2018Q4

REPORT INFORMATION
  Report Type: Spontaneous
  Country: CA (occurrence: CA)
  Receive Date: 20180427
  Receipt Date: 20181205
  Transmission Date: 20190204
  Serious: Yes (Hospitalization, Other)
  Sender: FDA-Public Use
  Company Number: CA-CELLTRION INC.-2018CA019461

PATIENT

DRUGS (7)
  1. INFLECTRA [Suspect]
     Active Substance: INFLIXIMAB-DYYB
     Indication: CROHN^S DISEASE
     Dosage: 300 MG, CYCLIC (0, 2, 6  WEEKS, THEN EVERY 8 WEEKS)
     Route: 042
     Dates: start: 20171006
  2. INFLECTRA [Suspect]
     Active Substance: INFLIXIMAB-DYYB
     Dosage: 300 MG, CYCLIC (0, 2, 6  WEEKS, THEN EVERY 8 WEEKS)
     Route: 042
     Dates: start: 20180112, end: 20180112
  3. INFLECTRA [Suspect]
     Active Substance: INFLIXIMAB-DYYB
     Dosage: 500 MG, CYCLIC (EVERY 6 WEEKS)
     Route: 042
     Dates: start: 20180713
  4. HUMIRA [Concomitant]
     Active Substance: ADALIMUMAB
  5. HYDROCORTISONE. [Concomitant]
     Active Substance: HYDROCORTISONE
     Dosage: 200 MG
  6. INFLECTRA [Suspect]
     Active Substance: INFLIXIMAB-DYYB
     Dosage: 500 MG, CYCLIC (EVERY 6 WEEKS)
     Route: 042
     Dates: start: 20180308, end: 20180308
  7. INFLECTRA [Suspect]
     Active Substance: INFLIXIMAB-DYYB
     Dosage: 500 MG, CYCLIC (EVERY 6 WEEKS)
     Route: 042
     Dates: start: 20180420, end: 20180420

REACTIONS (7)
  - Body temperature increased [Recovered/Resolved]
  - Functional gastrointestinal disorder [Unknown]
  - Vomiting [Not Recovered/Not Resolved]
  - Condition aggravated [Not Recovered/Not Resolved]
  - Product use issue [Unknown]
  - Crohn^s disease [Not Recovered/Not Resolved]
  - Abdominal pain [Not Recovered/Not Resolved]

NARRATIVE: CASE EVENT DATE: 20180309
